FAERS Safety Report 19192044 (Version 2)
Quarter: 2021Q3

REPORT INFORMATION
  Report Type: Spontaneous
  Country: JP (occurrence: JP)
  Receive Date: 20210428
  Receipt Date: 20210901
  Transmission Date: 20211014
  Serious: Yes (Hospitalization)
  Sender: FDA-Public Use
  Company Number: JP-TAKEDA-2021TUS026557

PATIENT
  Age: 39 Year
  Sex: Male

DRUGS (7)
  1. PENTASA [Suspect]
     Active Substance: MESALAMINE
     Dosage: 1000 MILLIGRAM
     Route: 065
     Dates: start: 2018
  2. PENTASA [Suspect]
     Active Substance: MESALAMINE
     Dosage: 1500 MILLIGRAM
     Route: 065
     Dates: start: 2018
  3. PENTASA [Suspect]
     Active Substance: MESALAMINE
     Dosage: 4000 MILLIGRAM
     Route: 048
     Dates: start: 2018
  4. LIALDA [Suspect]
     Active Substance: MESALAMINE
     Indication: COLITIS ULCERATIVE
     Dosage: 4800 MILLIGRAM, QD
     Route: 048
     Dates: start: 20180818, end: 20180908
  5. LIALDA [Suspect]
     Active Substance: MESALAMINE
     Dosage: 4800 MILLIGRAM, QD
     Route: 048
     Dates: start: 20180819, end: 20180908
  6. PENTASA [Suspect]
     Active Substance: MESALAMINE
     Dosage: 5 MILLIGRAM
     Route: 065
     Dates: start: 2018
  7. PENTASA [Suspect]
     Active Substance: MESALAMINE
     Indication: COLITIS ULCERATIVE
     Dosage: 2000 MILLIGRAM
     Route: 065
     Dates: start: 20180910

REACTIONS (3)
  - Arthralgia [Unknown]
  - Drug intolerance [Recovering/Resolving]
  - Rectal tenesmus [Unknown]

NARRATIVE: CASE EVENT DATE: 201809
